FAERS Safety Report 17349986 (Version 1)
Quarter: 2020Q1

REPORT INFORMATION
  Report Type: Report from Study
  Country: None (occurrence: US)
  Receive Date: 20200130
  Receipt Date: 20200130
  Transmission Date: 20200409
  Serious: Yes (Hospitalization)
  Sender: FDA-Public Use
  Company Number: US-ABBVIE-20K-163-3247037-00

PATIENT
  Sex: Female

DRUGS (1)
  1. VENCLEXTA [Suspect]
     Active Substance: VENETOCLAX
     Indication: NON-HODGKIN^S LYMPHOMA
     Dosage: TAKE 4 TABLETS BY MOUTH DAILY
     Route: 048

REACTIONS (4)
  - Neoplasm malignant [Unknown]
  - Diarrhoea [Unknown]
  - Off label use [Unknown]
  - Asthenia [Unknown]
